FAERS Safety Report 6859604-9 (Version None)
Quarter: 2010Q3

REPORT INFORMATION
  Report Type: 
  Country: None (occurrence: None)
  Receive Date: 20100719
  Receipt Date: 20091014
  Transmission Date: 20110219
  Serious: No
  Sender: FDA-Public Use
  Company Number: US-PFIZER INC-2008015207

PATIENT
  Sex: Male
  Weight: 142 kg

DRUGS (5)
  1. CHANTIX [Suspect]
     Indication: SMOKING CESSATION THERAPY
     Route: 048
     Dates: start: 20070831
  2. DEPAKOTE [Concomitant]
  3. NAVANE [Concomitant]
  4. PAXIL [Concomitant]
  5. KLONOPIN [Concomitant]

REACTIONS (2)
  - ABNORMAL DREAMS [None]
  - DRUG INEFFECTIVE [None]
